FAERS Safety Report 9229209 (Version 1)
Quarter: 2013Q2

REPORT INFORMATION
  Report Type: Spontaneous
  Country: US (occurrence: US)
  Receive Date: 20130412
  Receipt Date: 20130412
  Transmission Date: 20140414
  Serious: No
  Sender: FDA-Public Use
  Company Number: US-ASTELLAS-2012US011275

PATIENT
  Age: 59 Year
  Sex: Female

DRUGS (1)
  1. PROGRAF [Suspect]
     Indication: TRANSPLANT
     Dosage: 7 MG EVERY 12 HOURS
     Route: 048
     Dates: start: 201202

REACTIONS (1)
  - Tinnitus [Not Recovered/Not Resolved]
